FAERS Safety Report 9470671 (Version 4)
Quarter: 2014Q2

REPORT INFORMATION
  Report Type: Spontaneous
  Country: US (occurrence: US)
  Receive Date: 20130822
  Receipt Date: 20140512
  Transmission Date: 20141212
  Serious: No
  Sender: FDA-Public Use
  Company Number: US-PFIZER INC-2013242347

PATIENT
  Age: 52 Year
  Sex: Female
  Weight: 58.96 kg

DRUGS (5)
  1. LYRICA [Suspect]
     Indication: FIBROMYALGIA
     Dosage: 100 MG, 5X/DAY
     Dates: end: 20130816
  2. LYRICA [Suspect]
     Indication: INTERVERTEBRAL DISC DEGENERATION
     Dosage: 100 MG, 1 EVERY 12 HOURS AND 3 QHS
     Dates: start: 20140430
  3. LYRICA [Suspect]
     Indication: BACK PAIN
  4. REMERON [Concomitant]
     Indication: DEPRESSION
     Dosage: 30 MG, 1X/DAY
  5. MORPHINE [Concomitant]
     Indication: PAIN
     Dosage: UNK

REACTIONS (3)
  - Mood altered [Recovered/Resolved]
  - Malaise [Recovered/Resolved]
  - Restlessness [Recovered/Resolved]
